FAERS Safety Report 18905785 (Version 1)
Quarter: 2021Q1

REPORT INFORMATION
  Report Type: Spontaneous
  Country: US (occurrence: US)
  Receive Date: 20210217
  Receipt Date: 20210217
  Transmission Date: 20210420
  Serious: Yes (Hospitalization, Other)
  Sender: FDA-Public Use
  Company Number: US-GLAXOSMITHKLINE-USCH2021GSK005912

PATIENT
  Age: 18 Year
  Sex: Female

DRUGS (1)
  1. IBUPROFEN. [Suspect]
     Active Substance: IBUPROFEN
     Indication: HEADACHE
     Dosage: UNK

REACTIONS (10)
  - Mucosa vesicle [Unknown]
  - Visual acuity reduced [Recovered/Resolved]
  - Erythema [Unknown]
  - Rash erythematous [Unknown]
  - Stevens-Johnson syndrome [Unknown]
  - Genital labial adhesions [Unknown]
  - Blepharosynechia [Unknown]
  - Skin hyperpigmentation [Unknown]
  - Conjunctival scar [Unknown]
  - Symblepharon [Unknown]
